FAERS Safety Report 20468223 (Version 1)
Quarter: 2022Q1

REPORT INFORMATION
  Report Type: Spontaneous
  Country: US (occurrence: US)
  Receive Date: 20220214
  Receipt Date: 20220214
  Transmission Date: 20220423
  Serious: Yes (Other)
  Sender: FDA-Public Use
  Company Number: US-LUPIN PHARMACEUTICALS INC.-2022-01869

PATIENT
  Sex: Female

DRUGS (35)
  1. FAMOTIDINE [Suspect]
     Active Substance: FAMOTIDINE
     Indication: Anaphylaxis prophylaxis
     Dosage: 20 MG (RECEIVED ONCE DURING RITUXIMAB DESENSITISATION)
     Route: 042
     Dates: start: 2018
  2. METHYLPREDNISOLONE [Suspect]
     Active Substance: METHYLPREDNISOLONE
     Indication: Pemphigus
     Dosage: 20 MG, QD
     Route: 065
  3. METHYLPREDNISOLONE [Suspect]
     Active Substance: METHYLPREDNISOLONE
     Indication: Anaphylaxis prophylaxis
     Dosage: 100 MG (RECEIVED DURING LOADING DOSE OF RITUXIMAB)
     Route: 042
     Dates: start: 201606
  4. METHYLPREDNISOLONE [Suspect]
     Active Substance: METHYLPREDNISOLONE
     Dosage: 125 MG (RECEIVED DURING RELAPSE OF PEMPHIGUS VULGARIS)
     Route: 042
     Dates: start: 2017
  5. METHYLPREDNISOLONE [Suspect]
     Active Substance: METHYLPREDNISOLONE
     Dosage: 50 MG (RECEIVED DURING RITUXIMAB DESENSITISATION)
     Route: 042
     Dates: start: 2018
  6. METHYLPREDNISOLONE [Suspect]
     Active Substance: METHYLPREDNISOLONE
     Dosage: 125 MG (RECEIVED DURING OCRELIZUMAB THERAPY)
     Route: 042
     Dates: start: 2018
  7. AZATHIOPRINE [Suspect]
     Active Substance: AZATHIOPRINE
     Indication: Pemphigus
     Dosage: 150 MG, QD
     Route: 065
  8. HUMAN IMMUNOGLOBULIN G [Suspect]
     Active Substance: HUMAN IMMUNOGLOBULIN G
     Indication: Pemphigus
     Dosage: 180 MG, MONTHLY
     Route: 042
  9. DIPHENHYDRAMINE [Suspect]
     Active Substance: DIPHENHYDRAMINE
     Indication: Pemphigus
     Dosage: RECEIVED DURING LOADING DOSE OF RITUXIMAB
     Route: 042
     Dates: start: 201606
  10. DIPHENHYDRAMINE [Suspect]
     Active Substance: DIPHENHYDRAMINE
     Dosage: 50 MG (RECEIVED DURING RELAPSE OF PEMPHIGUS VULGARIS)
     Route: 042
     Dates: start: 2017
  11. DIPHENHYDRAMINE [Suspect]
     Active Substance: DIPHENHYDRAMINE
     Dosage: 50 MG (RECEIVED DURING RITUXIMAB DESENSITISATION)
     Route: 042
     Dates: start: 2018
  12. DIPHENHYDRAMINE [Suspect]
     Active Substance: DIPHENHYDRAMINE
     Dosage: 50 MG (RECEIVED DURING OCRELIZUMAB THERAPY)
     Route: 042
     Dates: start: 2018
  13. ACETAMINOPHEN [Suspect]
     Active Substance: ACETAMINOPHEN
     Indication: Anaphylaxis prophylaxis
     Dosage: 650 MG (RECEIVED ON RELAPSE OF PEMPHIGUS VULGARIS)
     Route: 048
     Dates: start: 2017
  14. ACETAMINOPHEN [Suspect]
     Active Substance: ACETAMINOPHEN
     Dosage: 650 MG (RECEIVED DURING OCRELIZUMAB THERAPY)
     Route: 048
     Dates: start: 2018
  15. MONTELUKAST [Suspect]
     Active Substance: MONTELUKAST SODIUM
     Indication: Anaphylaxis prophylaxis
     Dosage: 10 MG (RECEIVED ONCE DURING RITUXIMAB DESENSITISATION)
     Route: 048
     Dates: start: 2018
  16. ASPIRIN [Suspect]
     Active Substance: ASPIRIN
     Indication: Anaphylaxis prophylaxis
     Dosage: 325 MG (RECEIVED ONCE DURING RITUXIMAB DESENSITISATION)
     Route: 048
     Dates: start: 2018
  17. OCREVUS [Concomitant]
     Active Substance: OCRELIZUMAB
     Indication: Pemphigus
     Dosage: 300 MG (RECEIVED AS LOADING DOSE ON DAY 0)
     Route: 042
     Dates: start: 2018
  18. OCREVUS [Concomitant]
     Active Substance: OCRELIZUMAB
     Dosage: 300 MG (RECEIVED AS LOADING DOSE ON DAY 15)
     Route: 042
     Dates: start: 2018
  19. OCREVUS [Concomitant]
     Active Substance: OCRELIZUMAB
     Dosage: 300 MG (RECEIVED AS LOADING DOSE AT 6 MONTHS)
     Route: 042
     Dates: start: 2019
  20. OCREVUS [Concomitant]
     Active Substance: OCRELIZUMAB
     Dosage: 600 MG (RECEIVED AS MAINTENANCE DOSE AT 12, 18 AND 24 MONTHS)
     Route: 042
  21. PREDNISONE [Concomitant]
     Active Substance: PREDNISONE
     Indication: Pemphigus
     Dosage: RECEIVED DURING LOADING DOSE OF RITUXIMAB
     Route: 065
     Dates: start: 201606
  22. PREDNISONE [Concomitant]
     Active Substance: PREDNISONE
     Dosage: 40 MG, QD (RECEIVED DURING LOADING DOSE OF RITUXIMAB)
     Route: 065
     Dates: start: 2016
  23. PREDNISONE [Concomitant]
     Active Substance: PREDNISONE
     Dosage: 20 MG, QD (RECEIVED DURING RELAPSE OF PEMPHIGUS VULGARIS)
     Route: 065
     Dates: start: 2017
  24. PREDNISONE [Concomitant]
     Active Substance: PREDNISONE
     Dosage: 20 MG, QD (RECEIVED ONCE DURING RITUXIMAB DESENSITISATION)
     Route: 065
     Dates: start: 2018
  25. PREDNISONE [Concomitant]
     Active Substance: PREDNISONE
     Dosage: 20 MG, QD (RECEIVED DURING OCRELIZUMAB THERAPY)
     Route: 065
     Dates: start: 2018
  26. PREDNISONE [Concomitant]
     Active Substance: PREDNISONE
     Dosage: 10 MG, QD (RECEIVED DURING OCRELIZUMAB THERAPY)
     Route: 065
     Dates: start: 2019
  27. METHOTREXATE [Concomitant]
     Active Substance: METHOTREXATE
     Indication: Pemphigus
     Dosage: 10 MG (RECEIVED DURING LOADING DOSE OF RITUXIMAB)
     Route: 065
     Dates: start: 201606
  28. METHOTREXATE [Concomitant]
     Active Substance: METHOTREXATE
     Dosage: 15 MG (RECEIVED ON RELAPSE OF PEMPHIGUS VULGARIS)
     Route: 065
     Dates: start: 2017
  29. DAPSONE [Concomitant]
     Active Substance: DAPSONE
     Indication: Pemphigus
     Dosage: 25 MG, QD (RECEIVED DURING LOADING DOSE OF RITUXIMAB)
     Route: 065
     Dates: start: 201606
  30. DAPSONE [Concomitant]
     Active Substance: DAPSONE
     Dosage: 75 MG, QD (RECEIVED ON RELAPSE OF PEMPHIGUS VULGARIS)
     Route: 065
     Dates: start: 2017
  31. RITUXIMAB [Concomitant]
     Active Substance: RITUXIMAB
     Indication: Pemphigus
     Dosage: 1000 MG (RECEIVED LOADING DOSE ON DAY 0)
     Route: 042
     Dates: start: 201606
  32. RITUXIMAB [Concomitant]
     Active Substance: RITUXIMAB
     Dosage: 1000 MG (RECEIVED LOADING DOSE ON DAY 15)
     Route: 042
     Dates: start: 2016
  33. RITUXIMAB [Concomitant]
     Active Substance: RITUXIMAB
     Dosage: 1000 MG (RECEIVED ONCE ON RELAPSE OF PEMPHIGUS VULGARIS)
     Route: 042
     Dates: start: 2017
  34. RITUXIMAB [Concomitant]
     Active Substance: RITUXIMAB
     Dosage: 1000 MG (RECEIVED ONCE DURING DESENSITISATION)
     Route: 042
     Dates: start: 2018
  35. CYCLOPHOSPHAMIDE [Concomitant]
     Active Substance: CYCLOPHOSPHAMIDE
     Indication: Pemphigus
     Dosage: 150 MG, QD
     Route: 065
     Dates: start: 2018

REACTIONS (2)
  - Drug ineffective for unapproved indication [Unknown]
  - Off label use [Unknown]
